FAERS Safety Report 5384006-4 (Version None)
Quarter: 2007Q3

REPORT INFORMATION
  Report Type: 
  Country: None (occurrence: None)
  Receive Date: 20070711
  Receipt Date: 20070706
  Transmission Date: 20080115
  Serious: Yes (Other)
  Sender: FDA-Public Use
  Company Number: DK-AVENTIS-200716048GDDC

PATIENT
  Age: 10 Year
  Sex: Male

DRUGS (1)
  1. MINIRIN [Suspect]
     Route: 060
     Dates: start: 20070430, end: 20070517

REACTIONS (6)
  - DIZZINESS [None]
  - HEADACHE [None]
  - NAUSEA [None]
  - PALLOR [None]
  - PERSONALITY CHANGE [None]
  - SKIN DISCOLOURATION [None]
